FAERS Safety Report 12448929 (Version 1)
Quarter: 2016Q2

REPORT INFORMATION
  Report Type: Spontaneous
  Country: IT (occurrence: IT)
  Receive Date: 20160608
  Receipt Date: 20160608
  Transmission Date: 20160815
  Serious: Yes (Other)
  Sender: FDA-Public Use
  Company Number: IT-TEVA-666266ACC

PATIENT
  Age: 68 Year
  Sex: Female

DRUGS (1)
  1. TERBINAFINE HYDROCHLORIDE. [Suspect]
     Active Substance: TERBINAFINE HYDROCHLORIDE
     Indication: FUNGAL INFECTION
     Dosage: 250 MILLIGRAM DAILY; 250 MG DAILY
     Route: 048
     Dates: start: 20160426, end: 20160515

REACTIONS (3)
  - Blood pressure increased [Unknown]
  - Pyrexia [Recovering/Resolving]
  - Rash maculo-papular [Recovering/Resolving]

NARRATIVE: CASE EVENT DATE: 20160515
